FAERS Safety Report 6162087-8 (Version None)
Quarter: 2009Q2

REPORT INFORMATION
  Report Type: 
  Country: None (occurrence: None)
  Receive Date: 20090417
  Receipt Date: 20090417
  Transmission Date: 20091009
  Serious: No
  Sender: FDA-Public Use
  Company Number: None

PATIENT
  Age: 13 Year
  Sex: Female
  Weight: 54.4316 kg

DRUGS (1)
  1. AZITHROMYCIN [Suspect]
     Indication: PHARYNGITIS STREPTOCOCCAL
     Dosage: DAY1: 2TAB./DAY2:1TAB
     Dates: start: 20090404, end: 20090405

REACTIONS (3)
  - ERYTHEMA [None]
  - PERIORBITAL OEDEMA [None]
  - SWELLING FACE [None]
